FAERS Safety Report 6544164-2 (Version None)
Quarter: 2010Q1

REPORT INFORMATION
  Report Type: 
  Country: None (occurrence: None)
  Receive Date: 20100120
  Receipt Date: 20090911
  Transmission Date: 20100710
  Serious: No
  Sender: FDA-Public Use
  Company Number: US-ALLERGAN-0912400US

PATIENT
  Age: 71 Year
  Sex: Male

DRUGS (4)
  1. PRED FORTE [Suspect]
     Indication: POSTOPERATIVE CARE
     Dosage: UNK
     Route: 047
     Dates: start: 20030101
  2. PRED FORTE [Suspect]
     Dosage: QD-BID
     Route: 047
  3. PRED FORTE [Suspect]
     Dosage: UNK
     Route: 047
  4. PRED FORTE [Suspect]
     Dosage: QD-BID
     Route: 047

REACTIONS (3)
  - EYELID PTOSIS [None]
  - REBOUND EFFECT [None]
  - SWELLING FACE [None]
